FAERS Safety Report 20616772 (Version 28)
Quarter: 2023Q1

REPORT INFORMATION
  Report Type: Report from Study
  Country: CH (occurrence: None)
  Receive Date: 20220321
  Receipt Date: 20230130
  Transmission Date: 20230418
  Serious: Yes (Hospitalization)
  Sender: FDA-Public Use
  Company Number: CH-Eisai Medical Research-EC-2022-111052

PATIENT
  Age: 52 Year
  Sex: Male
  Weight: 81.1 kg

DRUGS (24)
  1. LENVATINIB [Suspect]
     Active Substance: LENVATINIB
     Indication: Hepatocellular carcinoma
     Dosage: STARTING DOSE AT 12 MG, FLUCTUATED DOSAGE
     Route: 048
     Dates: start: 20211201, end: 20220311
  2. LENVATINIB [Suspect]
     Active Substance: LENVATINIB
     Route: 048
     Dates: start: 20220325, end: 20220405
  3. LENVATINIB [Suspect]
     Active Substance: LENVATINIB
     Dosage: STARTING DOSE AT 4 MG, FLUCTUATED DOSAGE
     Route: 048
     Dates: start: 20220516, end: 20220606
  4. PEMBROLIZUMAB [Suspect]
     Active Substance: PEMBROLIZUMAB
     Indication: Hepatocellular carcinoma
     Dosage: MK-1308A (QUAVONLIMAB (MK-1308) 25 MILLIGRAM (+) PEMBROLIZUMAB (MK-3475) 400 MILLIGRAM)
     Route: 042
     Dates: start: 20211201, end: 20220223
  5. QUAVONLIMAB [Suspect]
     Active Substance: QUAVONLIMAB
     Dosage: MK-1308A (QUAVONLIMAB (MK-1308) 25 MILLIGRAM (+) PEMBROLIZUMAB (MK-3475) 400 MILLIGRAM)
     Route: 042
     Dates: start: 20220516
  6. FEXOFENADINE [Concomitant]
     Active Substance: FEXOFENADINE HYDROCHLORIDE
     Dates: start: 2016
  7. TEMESTA [Concomitant]
     Dates: start: 20190101
  8. ZOLPIDEM TARTRATE [Concomitant]
     Active Substance: ZOLPIDEM TARTRATE
     Dates: start: 2019, end: 20220918
  9. ASPIRIN [Concomitant]
     Active Substance: ASPIRIN
     Dates: start: 20210801, end: 20220325
  10. TORSEMIDE [Concomitant]
     Active Substance: TORSEMIDE
     Dates: start: 20211104, end: 20220516
  11. ESOMEPRAZOLE [Concomitant]
     Active Substance: ESOMEPRAZOLE
     Dates: start: 20210801
  12. NOVALGIN (METAMIZOLE SODIUM) [Concomitant]
     Active Substance: METAMIZOLE SODIUM
     Dates: start: 20210901
  13. ALDACTONE [Concomitant]
     Active Substance: SPIRONOLACTONE
     Dates: start: 20211104, end: 20220516
  14. MOTILIUM [Concomitant]
     Active Substance: DOMPERIDONE
     Dates: start: 20211204, end: 20220619
  15. ANTIDRY CALM [Concomitant]
     Dates: start: 20211208
  16. ANTIDRY WASH [Concomitant]
     Route: 061
     Dates: start: 20211208, end: 20220331
  17. AMPHOTERICIN B [Concomitant]
     Active Substance: AMPHOTERICIN B
     Dates: start: 20220223, end: 20220323
  18. OVIXAN [Concomitant]
     Dosage: 1
     Dates: start: 20220301, end: 20220315
  19. PRURI-MED [Concomitant]
     Dates: start: 20220301
  20. NUTRAPLUS [Concomitant]
     Dates: start: 20220301
  21. PRURI MED LIPOLOTION [Concomitant]
     Dates: start: 20220301, end: 20220619
  22. FUSIDIC ACID [Concomitant]
     Active Substance: FUSIDIC ACID
     Dates: start: 20220301, end: 20220331
  23. POTASSIUM [Concomitant]
     Active Substance: POTASSIUM
     Dates: start: 20220223, end: 20220325
  24. CARBOHYDRATES\FATTY ACIDS\MINERALS\PROTEIN\VITAMINS [Concomitant]
     Active Substance: CARBOHYDRATES\FATTY ACIDS\MINERALS\PROTEIN\VITAMINS
     Dates: start: 20220202, end: 20220920

REACTIONS (3)
  - Colitis [Recovered/Resolved]
  - Gastrointestinal haemorrhage [Recovered/Resolved]
  - Vascular device infection [Recovered/Resolved]

NARRATIVE: CASE EVENT DATE: 20220310
